FAERS Safety Report 4556641-4 (Version None)
Quarter: 2005Q1

REPORT INFORMATION
  Report Type: 
  Country: None (occurrence: None)
  Receive Date: 20050120
  Receipt Date: 20041215
  Transmission Date: 20050727
  Serious: Yes (Hospitalization)
  Sender: FDA-Public Use
  Company Number: DE-BRISTOL-MYERS SQUIBB COMPANY-12796959

PATIENT
  Age: 46 Year
  Sex: Female
  Weight: 78 kg

DRUGS (2)
  1. TAXOL [Suspect]
     Indication: BREAST CANCER
     Dosage: START DATE:  08-JUN-2004 (317 MG), 22-JUN-2004 (317 MG) AND CYCLE 4 ON 20-JUL-2004 (320MG)
     Route: 042
     Dates: start: 20040706, end: 20040706
  2. EPIRUBICIN [Suspect]
     Indication: BREAST CANCER
     Dosage: START DATE:  08-AP-2004 (214 MG), 27-APR-2004 (214 MG), 11-MAY-2004 (214 MG)
     Route: 042
     Dates: start: 20040525, end: 20040525

REACTIONS (3)
  - ANAEMIA [None]
  - METASTASES TO CENTRAL NERVOUS SYSTEM [None]
  - VERTIGO POSITIONAL [None]
